FAERS Safety Report 12939679 (Version 1)
Quarter: 2016Q4

REPORT INFORMATION
  Report Type: Spontaneous
  Country: US (occurrence: US)
  Receive Date: 20161115
  Receipt Date: 20161115
  Transmission Date: 20170207
  Serious: No
  Sender: FDA-Public Use
  Company Number: US-BAYER-2016-218085

PATIENT
  Age: 1 Year
  Sex: Male
  Weight: 10.43 kg

DRUGS (1)
  1. MIRALAX [Suspect]
     Active Substance: POLYETHYLENE GLYCOL 3350
     Indication: GASTROINTESTINAL DISORDER
     Dosage: QUARTER OF THE CAP
     Route: 048
     Dates: start: 201609

REACTIONS (5)
  - Eye irritation [Unknown]
  - Ocular hyperaemia [Unknown]
  - Product use issue [Unknown]
  - Drug administered to patient of inappropriate age [Unknown]
  - Accidental exposure to product [Unknown]
